FAERS Safety Report 9559695 (Version 1)
Quarter: 2013Q3

REPORT INFORMATION
  Report Type: Spontaneous
  Country: JP (occurrence: JP)
  Receive Date: 20130927
  Receipt Date: 20130927
  Transmission Date: 20140515
  Serious: Yes (Other)
  Sender: FDA-Public Use
  Company Number: JP-ROCHE-1278197

PATIENT
  Sex: Female

DRUGS (4)
  1. PERJETA [Suspect]
     Indication: ENDOMETRIAL CANCER
     Dosage: DOSAGE IS UNCERTAIN; 420MG/14ML
     Route: 065
  2. PERJETA [Suspect]
     Indication: OFF LABEL USE
  3. HERCEPTIN [Suspect]
     Indication: ENDOMETRIAL CANCER
     Dosage: DOSAGE IS UNCERTAIN.
     Route: 065
  4. HERCEPTIN [Suspect]
     Indication: OFF LABEL USE

REACTIONS (3)
  - Neoplasm progression [Unknown]
  - Haemorrhage [Unknown]
  - Off label use [Unknown]
